FAERS Safety Report 8495652-3 (Version None)
Quarter: 2012Q3

REPORT INFORMATION
  Report Type: 
  Country: None (occurrence: None)
  Receive Date: 20120709
  Receipt Date: 20120627
  Transmission Date: 20120928
  Serious: Yes (Hospitalization)
  Sender: FDA-Public Use
  Company Number: DE-CELGENEUS-062-50794-12051452

PATIENT
  Age: 68 Year
  Sex: Male

DRUGS (2)
  1. VIDAZA [Suspect]
     Indication: MYELODYSPLASTIC SYNDROME
     Dosage: 126.75 MILLIGRAM
     Route: 058
     Dates: start: 20120416, end: 20120424
  2. VIDAZA [Suspect]

REACTIONS (4)
  - PYREXIA [None]
  - CHILLS [None]
  - VOMITING [None]
  - GENERAL PHYSICAL HEALTH DETERIORATION [None]
